FAERS Safety Report 18476902 (Version 1)
Quarter: 2020Q4

REPORT INFORMATION
  Report Type: Report from Study
  Country: IN (occurrence: IN)
  Receive Date: 20201107
  Receipt Date: 20201107
  Transmission Date: 20210114
  Serious: Yes (Other)
  Sender: FDA-Public Use
  Company Number: NVSC2020IN294757

PATIENT
  Age: 57 Year
  Sex: Female

DRUGS (1)
  1. KRYXANA [Suspect]
     Active Substance: RIBOCICLIB
     Indication: BREAST CANCER METASTATIC
     Dosage: 600 MG, QD (ONCE DAILY)
     Route: 048
     Dates: start: 20200414, end: 202009

REACTIONS (4)
  - Nausea [Recovered/Resolved]
  - Rash [Recovering/Resolving]
  - Vomiting [Recovered/Resolved]
  - Skin exfoliation [Recovering/Resolving]

NARRATIVE: CASE EVENT DATE: 202007
